FAERS Safety Report 5047122-2 (Version None)
Quarter: 2006Q3

REPORT INFORMATION
  Report Type: 
  Country: None (occurrence: None)
  Receive Date: 20060703
  Receipt Date: 20060622
  Transmission Date: 20061208
  Serious: Yes (Hospitalization)
  Sender: FDA-Public Use
  Company Number: 2006067219

PATIENT
  Age: 56 Year
  Sex: Male
  Weight: 82 kg

DRUGS (3)
  1. SUTENT [Suspect]
     Indication: RENAL CELL CARCINOMA STAGE UNSPECIFIED
     Dosage: 50 MG (50 MG, INTERVAL: DAILY X 4 WEEKS), ORAL
     Route: 048
     Dates: start: 20060417, end: 20060515
  2. LEVOTHYROXINE SODIUM [Concomitant]
  3. KLOSIDOL (DEXTROPROPOXYPHENE, METAMIZOLE SODIUM) [Concomitant]

REACTIONS (14)
  - ASTHENIA [None]
  - BACK PAIN [None]
  - BLOOD CREATINE PHOSPHOKINASE INCREASED [None]
  - BLOOD UREA INCREASED [None]
  - DRUG DOSE OMISSION [None]
  - HEPATIC ENCEPHALOPATHY [None]
  - HEPATIC FAILURE [None]
  - HEPATOCELLULAR DAMAGE [None]
  - HYPOGLYCAEMIA [None]
  - INAPPROPRIATE SCHEDULE OF DRUG ADMINISTRATION [None]
  - MUSCLE INJURY [None]
  - OVERDOSE [None]
  - PAIN [None]
  - PROTHROMBIN TIME PROLONGED [None]
